FAERS Safety Report 8866496 (Version 1)
Quarter: 2012Q4

REPORT INFORMATION
  Report Type: 
  Country: FR (occurrence: FR)
  Receive Date: 20121025
  Receipt Date: 20121025
  Transmission Date: 20130627
  Serious: Yes (Other)
  Sender: FDA-Public Use
  Company Number: FR-ROCHE-1148166

PATIENT

DRUGS (3)
  1. RITUXIMAB [Suspect]
     Indication: B-CELL LYMPHOMA
     Route: 042
  2. ACETAMINOPHEN [Concomitant]
     Indication: PREMEDICATION
  3. CHLORPHENIRAMINE MALEATE/DEXCHLORPHENIRAMINE MALEATE [Concomitant]
     Indication: PREMEDICATION

REACTIONS (11)
  - Neutropenia [Recovered/Resolved]
  - Thrombocytopenia [Unknown]
  - Chest pain [Unknown]
  - Oedema [Unknown]
  - Back pain [Unknown]
  - Pneumonia [Unknown]
  - Pulmonary tuberculosis [Unknown]
  - Immunosuppression [Unknown]
  - Herpes zoster [Unknown]
  - Liver function test abnormal [Unknown]
  - Depression [Unknown]
